FAERS Safety Report 11111856 (Version 1)
Quarter: 2015Q2

REPORT INFORMATION
  Report Type: Spontaneous
  Country: US (occurrence: US)
  Receive Date: 20150514
  Receipt Date: 20150514
  Transmission Date: 20150821
  Serious: No
  Sender: FDA-Public Use
  Company Number: US-009507513-1505USA003514

PATIENT
  Age: 18 Year
  Sex: Female

DRUGS (1)
  1. NEXPLANON [Suspect]
     Active Substance: ETONOGESTREL
     Indication: CONTRACEPTION
     Dosage: IMPLANT 68MG (1 ROD); FREQUENCY UNKNOWN
     Route: 059
     Dates: start: 2014, end: 20150507

REACTIONS (2)
  - Implant site pain [Unknown]
  - Acne [Unknown]

NARRATIVE: CASE EVENT DATE: 2014
